FAERS Safety Report 18573139 (Version 2)
Quarter: 2021Q1

REPORT INFORMATION
  Report Type: Spontaneous
  Country: DE (occurrence: DE)
  Receive Date: 20201203
  Receipt Date: 20210127
  Transmission Date: 20210419
  Serious: Yes (Hospitalization)
  Sender: FDA-Public Use
  Company Number: DE-SUN PHARMACEUTICAL INDUSTRIES LTD-2020RR-269272

PATIENT
  Age: 70 Year
  Sex: Male

DRUGS (6)
  1. OXALIPLATIN SUN 5 MG/ML KONZENTRAT ZUR HERSTELLUNG EINER [Suspect]
     Active Substance: OXALIPLATIN
     Indication: PRODUCT USED FOR UNKNOWN INDICATION
     Dosage: DOSIERUNG INDIVUDIELLALLE 2 WOCHEN/TEILWEISE ?BER MONATEVOLUMEN/L?SUNGSMITTEL: GLUCOSE 5% 500ML...
     Route: 042
  2. AVASTIN [Concomitant]
     Active Substance: BEVACIZUMAB
     Indication: PRODUCT USED FOR UNKNOWN INDICATION
     Dosage: UNK
     Route: 065
  3. DEXAMETHASON [Concomitant]
     Active Substance: DEXAMETHASONE
     Indication: PRODUCT USED FOR UNKNOWN INDICATION
     Dosage: 30 MINUTEN VOR BEGINN DER CHEMOTHERAPIE
     Route: 065
  4. 5?FU [Concomitant]
     Active Substance: FLUOROURACIL
     Indication: PRODUCT USED FOR UNKNOWN INDICATION
     Dosage: UNK
     Route: 065
  5. FOLINSAEURE [Concomitant]
     Active Substance: LEUCOVORIN
     Indication: PRODUCT USED FOR UNKNOWN INDICATION
     Dosage: UNK
     Route: 065
  6. GRANISETRON [Concomitant]
     Active Substance: GRANISETRON
     Indication: PRODUCT USED FOR UNKNOWN INDICATION
     Dosage: 30 MINUTEN VOR BEGINN DER CHEMOTHERAPIE
     Route: 065

REACTIONS (4)
  - Hypersensitivity [Unknown]
  - Dyspnoea [Unknown]
  - Product impurity [Unknown]
  - Bronchospasm [Unknown]

NARRATIVE: CASE EVENT DATE: 202010
